FAERS Safety Report 7312978-7 (Version None)
Quarter: 2011Q1

REPORT INFORMATION
  Report Type: 
  Country: None (occurrence: None)
  Receive Date: 20110224
  Receipt Date: 20110218
  Transmission Date: 20110831
  Serious: Yes (Other)
  Sender: FDA-Public Use
  Company Number: US-BRISTOL-MYERS SQUIBB COMPANY-15558745

PATIENT
  Sex: Female

DRUGS (2)
  1. CENTRUM SILVER [Suspect]
  2. METFORMIN HCL [Suspect]
     Indication: DIABETES MELLITUS

REACTIONS (2)
  - DIZZINESS [None]
  - INTRAOCULAR PRESSURE TEST ABNORMAL [None]
